FAERS Safety Report 5010148-9 (Version None)
Quarter: 2006Q2

REPORT INFORMATION
  Report Type: 
  Country: None (occurrence: None)
  Receive Date: 20060404
  Receipt Date: 20051207
  Transmission Date: 20061013
  Serious: No
  Sender: FDA-Public Use
  Company Number: US200512001834

PATIENT
  Age: 51 Year
  Sex: Female

DRUGS (1)
  1. CYMBALTA [Suspect]
     Dosage: 60 MG
     Dates: start: 20051014, end: 20051130

REACTIONS (2)
  - DIARRHOEA [None]
  - FAECAL INCONTINENCE [None]
